FAERS Safety Report 4276456-4 (Version None)
Quarter: 2004Q1

REPORT INFORMATION
  Report Type: 
  Country: None (occurrence: None)
  Receive Date: 20040121
  Receipt Date: 20040121
  Transmission Date: 20041129
  Serious: No
  Sender: FDA-Public Use
  Company Number: None

PATIENT
  Age: 62 Year
  Sex: Male
  Weight: 97.5234 kg

DRUGS (4)
  1. LIPITOR [Suspect]
     Indication: BLOOD CHOLESTEROL
     Dosage: ORAL
     Route: 048
  2. DYAZIDE [Concomitant]
  3. NORVASC [Concomitant]
  4. K SUPPLEMENT [Concomitant]

REACTIONS (3)
  - ALOPECIA TOTALIS [None]
  - AMNESIA [None]
  - MUSCULAR WEAKNESS [None]
